APPROVED DRUG PRODUCT: ADDERALL 7.5
Active Ingredient: AMPHETAMINE ASPARTATE; AMPHETAMINE SULFATE; DEXTROAMPHETAMINE SACCHARATE; DEXTROAMPHETAMINE SULFATE
Strength: 1.875MG;1.875MG;1.875MG;1.875MG **Federal Register determination that product was not discontinued or withdrawn for safety or effectiveness reasons**
Dosage Form/Route: TABLET;ORAL
Application: N011522 | Product #011
Applicant: TEVA WOMENS HEALTH INC
Approved: Aug 31, 2000 | RLD: Yes | RS: No | Type: DISCN